FAERS Safety Report 7648551-0 (Version None)
Quarter: 2011Q3

REPORT INFORMATION
  Report Type: 
  Country: None (occurrence: None)
  Receive Date: 20110801
  Receipt Date: 20110718
  Transmission Date: 20111222
  Serious: Yes (Other)
  Sender: FDA-Public Use
  Company Number: PHHY2011US64140

PATIENT
  Sex: Male
  Weight: 168 kg

DRUGS (4)
  1. PROVIODINE [Concomitant]
     Indication: BLOOD CHOLESTEROL INCREASED
     Dosage: 40 MG, UNK
     Route: 048
  2. DIOVAN [Suspect]
     Indication: HYPERTENSION
     Dosage: 180 MG, UNK
     Route: 048
  3. CARDIOGEN-82 [Concomitant]
     Dosage: 180 MG, UNK
     Route: 048
  4. DIOVAN [Suspect]
     Dosage: UNK UKN, UNK

REACTIONS (3)
  - RENAL DISORDER [None]
  - HYPOTENSION [None]
  - PROTEIN URINE PRESENT [None]
